FAERS Safety Report 9895385 (Version 1)
Quarter: 2014Q1

REPORT INFORMATION
  Report Type: Spontaneous
  Country: US (occurrence: US)
  Receive Date: 20140213
  Receipt Date: 20140213
  Transmission Date: 20141002
  Serious: No
  Sender: FDA-Public Use
  Company Number: US-BRISTOL-MYERS SQUIBB COMPANY-17278078

PATIENT
  Age: 65 Year
  Sex: Female
  Weight: 64.4 kg

DRUGS (10)
  1. ABATACEPT SUBQ INJECTION 125MG/ML [Suspect]
     Dosage: 1DF:125MG/1ML
     Route: 058
  2. ALLEGRA [Concomitant]
     Dosage: TABS
  3. NIZATIDINE [Concomitant]
     Dosage: CAPS
  4. FOLIC ACID [Concomitant]
     Dosage: TABS
  5. HYDROCODONE + ACETAMINOPHEN [Concomitant]
     Dosage: 1DF:5-500 MG, CAPS
  6. PREDNISONE [Concomitant]
  7. FISH OIL [Concomitant]
     Dosage: CAPS
  8. ONE-A-DAY [Concomitant]
     Dosage: TABS, WOMEN
  9. CALCIUM + VITAMIN D [Concomitant]
     Dosage: TABS
  10. METHOTREXATE [Concomitant]
     Dosage: INJECTION

REACTIONS (1)
  - Sinusitis [Unknown]
